FAERS Safety Report 6905893-1 (Version None)
Quarter: 2010Q3

REPORT INFORMATION
  Report Type: 
  Country: None (occurrence: None)
  Receive Date: 20100804
  Receipt Date: 20100802
  Transmission Date: 20110219
  Serious: Yes (Death)
  Sender: FDA-Public Use
  Company Number: US-JNJCH-200112-0496

PATIENT
  Age: 14 Year
  Sex: Male

DRUGS (4)
  1. DIPHENHYDRAMINE [Suspect]
     Route: 065
  2. CETIRIZINE HYDROCHLORIDE [Suspect]
     Indication: DERMATITIS CONTACT
     Dosage: TEXT:10.00 MG-FREQ:DAILY
     Route: 048
     Dates: start: 19990709, end: 19990709
  3. DEXAMETHASONE [Concomitant]
     Route: 048
  4. PREDNISONE [Concomitant]
     Route: 048

REACTIONS (2)
  - COMA [None]
  - CONVULSION [None]
